FAERS Safety Report 25975940 (Version 1)
Quarter: 2025Q4

REPORT INFORMATION
  Report Type: Spontaneous
  Country: US (occurrence: US)
  Receive Date: 20251029
  Receipt Date: 20251029
  Transmission Date: 20260118
  Serious: Yes (Hospitalization)
  Sender: ROCHE
  Company Number: US-ROCHE-10000417524

PATIENT
  Age: 87 Year
  Sex: Female
  Weight: 53 kg

DRUGS (5)
  1. ERIVEDGE [Suspect]
     Active Substance: VISMODEGIB
     Indication: Basal cell carcinoma
     Route: 048
     Dates: start: 20250910, end: 20251017
  2. OMEPRAZOLE [Concomitant]
     Active Substance: OMEPRAZOLE
  3. MEMANTINE [Concomitant]
     Active Substance: MEMANTINE
  4. ASPIRIN [Concomitant]
     Active Substance: ASPIRIN
  5. Abuterol [Concomitant]

REACTIONS (1)
  - Sepsis [Recovered/Resolved]

NARRATIVE: CASE EVENT DATE: 20251010
